FAERS Safety Report 7265768-8 (Version None)
Quarter: 2011Q1

REPORT INFORMATION
  Report Type: 
  Country: None (occurrence: None)
  Receive Date: 20110131
  Receipt Date: 20110122
  Transmission Date: 20110831
  Serious: Yes (Death)
  Sender: FDA-Public Use
  Company Number: GB-PFIZER INC-GB-WYE-G05097409

PATIENT
  Age: 76 Year
  Sex: Female

DRUGS (4)
  1. DAUNORUBICIN [Suspect]
     Dosage: UNK
     Route: 065
     Dates: start: 20090520, end: 20090529
  2. DAUNORUBICIN [Suspect]
     Dosage: UNK
     Route: 065
     Dates: start: 20090713, end: 20090720
  3. GEMTUZUMAB OZOGAMICIN [Suspect]
     Indication: ACUTE MYELOID LEUKAEMIA
     Dosage: UNK
     Route: 065
     Dates: start: 20090520, end: 20090529
  4. CYTARABINE [Suspect]
     Dosage: UNK
     Route: 065
     Dates: start: 20090520

REACTIONS (3)
  - DISEASE PROGRESSION [None]
  - NEOPLASM MALIGNANT [None]
  - ACUTE MYELOID LEUKAEMIA [None]
